FAERS Safety Report 24338723 (Version 1)
Quarter: 2024Q3

REPORT INFORMATION
  Report Type: Spontaneous
  Country: US (occurrence: US)
  Receive Date: 20240919
  Receipt Date: 20240919
  Transmission Date: 20241017
  Serious: Yes (Hospitalization)
  Sender: HIKMA
  Company Number: US-HIKMA PHARMACEUTICALS USA INC.-US-H14001-24-08590

PATIENT
  Age: 54 Year
  Sex: Female

DRUGS (9)
  1. ALBUTEROL [Suspect]
     Active Substance: ALBUTEROL
     Indication: Asthma
     Dosage: Q3H, IN THE PAST 24 HOURS
     Route: 055
  2. ALBUTEROL [Suspect]
     Active Substance: ALBUTEROL
     Indication: Asthma
     Dosage: UNKNOWN
     Route: 065
  3. ALBUTEROL\IPRATROPIUM [Suspect]
     Active Substance: ALBUTEROL\IPRATROPIUM
     Indication: Asthma
     Dosage: 3 TIMES CONSECUTIVELY
     Route: 065
  4. METHYLPREDNISOLONE [Suspect]
     Active Substance: METHYLPREDNISOLONE
     Indication: Asthma
     Dosage: 125 MILLIGRAM
     Route: 042
  5. PREDNISONE [Suspect]
     Active Substance: PREDNISONE
     Indication: Asthma
     Dosage: UNKNOWN
     Route: 065
  6. DUPILUMAB [Concomitant]
     Active Substance: DUPILUMAB
     Indication: Asthma
     Dosage: UNKNOWN
     Route: 065
  7. FLUTICASONE FUROATE\UMECLIDINIUM BROMIDE\VILANTEROL TRIFENATATE [Concomitant]
     Active Substance: FLUTICASONE FUROATE\UMECLIDINIUM BROMIDE\VILANTEROL TRIFENATATE
     Indication: Asthma
     Dosage: UNKNOWN
     Route: 065
  8. IPRATROPIUM [Concomitant]
     Active Substance: IPRATROPIUM
     Indication: Asthma
     Dosage: UNKNOWN
     Route: 065
  9. MONTELUKAST [Concomitant]
     Active Substance: MONTELUKAST SODIUM
     Indication: Asthma
     Dosage: UNKNOWN
     Route: 065

REACTIONS (2)
  - Hypokalaemia [Recovering/Resolving]
  - Lactic acidosis [Recovering/Resolving]
